FAERS Safety Report 25852404 (Version 1)
Quarter: 2025Q3

REPORT INFORMATION
  Report Type: Spontaneous
  Country: US (occurrence: US)
  Receive Date: 20250926
  Receipt Date: 20250926
  Transmission Date: 20251020
  Serious: No
  Sender: PFIZER
  Company Number: US-PFIZER INC-PV202500113417

PATIENT
  Age: 57 Year
  Sex: Female

DRUGS (4)
  1. DOCETAXEL [Suspect]
     Active Substance: DOCETAXEL
     Indication: Non-small cell lung cancer metastatic
     Dates: start: 20220526, end: 20220920
  2. DOCETAXEL [Suspect]
     Active Substance: DOCETAXEL
     Dates: start: 20240829, end: 20250109
  3. DOCETAXEL [Suspect]
     Active Substance: DOCETAXEL
     Indication: Non-small cell lung cancer metastatic
     Dates: start: 20220526, end: 20220920
  4. DOCETAXEL [Suspect]
     Active Substance: DOCETAXEL
     Dates: start: 20240829, end: 20250109

REACTIONS (1)
  - Lacrimation increased [Not Recovered/Not Resolved]

NARRATIVE: CASE EVENT DATE: 20220701
